FAERS Safety Report 4505165-9 (Version None)
Quarter: 2004Q4

REPORT INFORMATION
  Report Type: 
  Country: None (occurrence: None)
  Receive Date: 20041119
  Receipt Date: 20040616
  Transmission Date: 20050328
  Serious: Yes (Hospitalization, Other)
  Sender: FDA-Public Use
  Company Number: 200416145GDDC

PATIENT
  Age: 52 Year
  Sex: Male

DRUGS (9)
  1. ARAVA [Suspect]
     Indication: RHEUMATOID ARTHRITIS
     Route: 048
     Dates: start: 20040331, end: 20040604
  2. VIOXX [Concomitant]
     Indication: RHEUMATOID ARTHRITIS
     Route: 048
     Dates: start: 20020201
  3. FLEXERIL [Concomitant]
     Dates: start: 20040401
  4. AMITRIPTYLINE [Concomitant]
     Dates: start: 20030101
  5. TYLENOL W/ CODEINE NO. 3 [Concomitant]
     Dosage: DOSE: 2 (PRN)
     Dates: start: 20040401
  6. FOLIC ACID [Concomitant]
     Dosage: DOSE: UNK
     Dates: start: 20031008
  7. IMOVANE [Concomitant]
     Dates: start: 20040225
  8. ENBREL [Concomitant]
     Indication: RHEUMATOID ARTHRITIS
     Route: 058
     Dates: start: 20041021
  9. METHOTREXATE [Concomitant]
     Dates: start: 20031008

REACTIONS (3)
  - DIPLOPIA [None]
  - DIZZINESS [None]
  - STEVENS-JOHNSON SYNDROME [None]
